FAERS Safety Report 4585396-2 (Version None)
Quarter: 2005Q1

REPORT INFORMATION
  Report Type: 
  Country: None (occurrence: None)
  Receive Date: 20050214
  Receipt Date: 20041027
  Transmission Date: 20050727
  Serious: Yes (Hospitalization)
  Sender: FDA-Public Use
  Company Number: 05-040

PATIENT
  Age: 57 Year
  Sex: Female

DRUGS (7)
  1. DEXAMETHASONE [Suspect]
     Indication: MYELOMA RECURRENCE
     Dosage: 40 MG/DAY, ORAL
     Route: 048
     Dates: start: 20020731, end: 20020803
  2. DEXAMETHASONE [Suspect]
     Indication: MYELOMA RECURRENCE
     Dosage: 40 MG/DAY, ORAL
     Route: 048
     Dates: start: 20021029, end: 20021101
  3. MULTI-VITAMIN [Concomitant]
  4. FAMOTIDINE [Concomitant]
  5. TRIMETHOPRIM-SULFAMETHOXAZOLE [Concomitant]
  6. OXYCODONE [Concomitant]
  7. ACETAMINOPHEN W/ CODEINE [Concomitant]

REACTIONS (8)
  - ABDOMINAL PAIN [None]
  - ABNORMAL BEHAVIOUR [None]
  - ACTIVITIES OF DAILY LIVING IMPAIRED [None]
  - ASTHENIA [None]
  - CHEST PAIN [None]
  - MEMORY IMPAIRMENT [None]
  - MYALGIA [None]
  - ORTHOPNOEA [None]
